FAERS Safety Report 10903285 (Version 1)
Quarter: 2015Q1

REPORT INFORMATION
  Report Type: Spontaneous
  Country: US (occurrence: US)
  Receive Date: 20150311
  Receipt Date: 20150311
  Transmission Date: 20150721
  Serious: Yes (Other)
  Sender: FDA-Public Use
  Company Number: US-SUN PHARMACEUTICAL INDUSTRIES LTD-2014SUN01880

PATIENT

DRUGS (2)
  1. TRAMADOL [Concomitant]
     Active Substance: TRAMADOL
     Dosage: SINCE ONE YEAR
  2. TESTOSTERONE  CYPIONATE INJECTION; 100 MG/ML [Suspect]
     Active Substance: TESTOSTERONE CYPIONATE
     Indication: BLOOD TESTOSTERONE DECREASED
     Dosage: 0.75 ML, EVERY TWO WEEKS
     Route: 030
     Dates: start: 20130320

REACTIONS (2)
  - Injection site abscess [Recovered/Resolved]
  - Injection site infection [Recovered/Resolved]

NARRATIVE: CASE EVENT DATE: 201407
